FAERS Safety Report 6730383-9 (Version None)
Quarter: 2010Q2

REPORT INFORMATION
  Report Type: 
  Country: None (occurrence: None)
  Receive Date: 20100518
  Receipt Date: 20100511
  Transmission Date: 20101027
  Serious: Yes (Hospitalization)
  Sender: FDA-Public Use
  Company Number: A0794433A

PATIENT
  Age: 58 Year
  Sex: Female

DRUGS (2)
  1. AVANDIA [Suspect]
     Dosage: 8U PER DAY
     Route: 048
     Dates: start: 20050825, end: 20060716
  2. AVANDAMET [Suspect]
     Dates: start: 20050928, end: 20060106

REACTIONS (2)
  - ARRHYTHMIA [None]
  - WEIGHT INCREASED [None]
